FAERS Safety Report 5529106-0 (Version None)
Quarter: 2007Q4

REPORT INFORMATION
  Report Type: 
  Country: None (occurrence: None)
  Receive Date: 20071129
  Receipt Date: 20061218
  Transmission Date: 20080405
  Serious: No
  Sender: FDA-Public Use
  Company Number: A0631938A

PATIENT
  Age: 58 Year
  Sex: Male

DRUGS (2)
  1. WELLBUTRIN SR [Suspect]
     Indication: DEPRESSION
     Dosage: 150MG TWICE PER DAY
     Route: 048
     Dates: start: 20061206
  2. CELEXA [Concomitant]

REACTIONS (1)
  - DRUG INEFFECTIVE [None]
